FAERS Safety Report 10178811 (Version 1)
Quarter: 2014Q2

REPORT INFORMATION
  Report Type: Report from Study
  Country: ES (occurrence: ES)
  Receive Date: 20140519
  Receipt Date: 20140519
  Transmission Date: 20141212
  Serious: Yes (Hospitalization)
  Sender: FDA-Public Use
  Company Number: ES-009507513-1405ESP007196

PATIENT
  Age: 79 Year
  Sex: Female
  Weight: 61 kg

DRUGS (2)
  1. INTERFERON ALFA-2B [Suspect]
     Indication: MALIGNANT MELANOMA
     Dosage: 20 MILIONS OF UI/M2, QD, 5 DAYS/WEEK
     Route: 042
     Dates: start: 20060619, end: 20060621
  2. INTERFERON ALFA-2B [Suspect]
     Dosage: 15 MILIONS OF UI/M2, QD, 5 DAYS/WEEK
     Route: 042
     Dates: start: 20060628, end: 20060714

REACTIONS (3)
  - Leukoencephalopathy [Recovered/Resolved]
  - Transaminases increased [Recovered/Resolved]
  - Influenza like illness [Recovered/Resolved]
